FAERS Safety Report 17442511 (Version 2)
Quarter: 2020Q2

REPORT INFORMATION
  Report Type: Spontaneous
  Country: JP (occurrence: JP)
  Receive Date: 20200220
  Receipt Date: 20200616
  Transmission Date: 20200713
  Serious: Yes (Other)
  Sender: FDA-Public Use
  Company Number: JP-MALLINCKRODT-T202000825

PATIENT

DRUGS (1)
  1. UVADEX [Suspect]
     Active Substance: METHOXSALEN
     Indication: CHRONIC GRAFT VERSUS HOST DISEASE
     Dosage: UNK (EXTRACORPOREAL)
     Route: 050

REACTIONS (6)
  - Wheezing [Unknown]
  - Product use in unapproved indication [Unknown]
  - Cardiac failure [Unknown]
  - Thrombosis in device [Unknown]
  - Oedema [Unknown]
  - Pneumonia [Unknown]
